FAERS Safety Report 6509743-7 (Version None)
Quarter: 2009Q4

REPORT INFORMATION
  Report Type: 
  Country: None (occurrence: None)
  Receive Date: 20091222
  Receipt Date: 20091214
  Transmission Date: 20100525
  Serious: Yes (Death)
  Sender: FDA-Public Use
  Company Number: JP-BAXTER-2009BH019305

PATIENT
  Age: 81 Year
  Sex: Male
  Weight: 60 kg

DRUGS (3)
  1. ADVATE [Suspect]
     Indication: FACTOR VIII DEFICIENCY
     Route: 065
  2. HEMOFIL M [Concomitant]
     Indication: FACTOR VIII DEFICIENCY
  3. RECOMBINATE [Concomitant]
     Indication: FACTOR VIII DEFICIENCY

REACTIONS (1)
  - RENAL FAILURE [None]
